FAERS Safety Report 9190440 (Version 1)
Quarter: 2013Q1

REPORT INFORMATION
  Report Type: Spontaneous
  Country: US (occurrence: None)
  Receive Date: 20120703
  Receipt Date: 20120703
  Transmission Date: 20140127
  Serious: Yes (Other)
  Sender: FDA-Public Use
  Company Number: PHEH2012US008638

PATIENT
  Age: 51 Year
  Sex: Female
  Weight: 133 kg

DRUGS (1)
  1. GILENYA (FTY)CAPSULE, 0.5MG [Suspect]
     Indication: MULTIPLE SCLEROSIS
     Route: 048
     Dates: start: 20110811

REACTIONS (3)
  - White blood cell count decreased [None]
  - Inappropriate schedule of drug administration [None]
  - Lymphocyte count decreased [None]
